FAERS Safety Report 9439826 (Version 1)
Quarter: 2013Q3

REPORT INFORMATION
  Report Type: Spontaneous
  Country: US (occurrence: US)
  Receive Date: 20130805
  Receipt Date: 20130805
  Transmission Date: 20140515
  Serious: Yes (Other)
  Sender: FDA-Public Use
  Company Number: US-BAYER-2013-091909

PATIENT
  Age: 24 Year
  Sex: Female

DRUGS (1)
  1. MIRENA [Suspect]
     Dosage: 20 MCG/24HR, CONT
     Route: 015
     Dates: start: 20081215, end: 20110305

REACTIONS (5)
  - Infection [None]
  - Fungal infection [None]
  - Urinary tract infection [None]
  - Seizure cluster [Not Recovered/Not Resolved]
  - Migraine [Not Recovered/Not Resolved]
